FAERS Safety Report 9530715 (Version 1)
Quarter: 2013Q3

REPORT INFORMATION
  Report Type: Spontaneous
  Country: US (occurrence: None)
  Receive Date: 20130916
  Receipt Date: 20130916
  Transmission Date: 20140515
  Serious: No
  Sender: FDA-Public Use
  Company Number: None

PATIENT
  Age: 2 Year
  Sex: Male

DRUGS (1)
  1. GENOTROPIN [Suspect]
     Indication: DWARFISM
     Route: 058
     Dates: start: 20121206

REACTIONS (2)
  - Decreased appetite [None]
  - Paraesthesia [None]
